FAERS Safety Report 4612229-8 (Version None)
Quarter: 2005Q1

REPORT INFORMATION
  Report Type: 
  Country: None (occurrence: None)
  Receive Date: 20050316
  Receipt Date: 20050228
  Transmission Date: 20050727
  Serious: Yes (Other)
  Sender: FDA-Public Use
  Company Number: US_0503113991

PATIENT
  Sex: Male

DRUGS (1)
  1. STRATTERA [Suspect]

REACTIONS (1)
  - CONVULSION [None]
